FAERS Safety Report 7241776-8 (Version None)
Quarter: 2011Q1

REPORT INFORMATION
  Report Type: 
  Country: None (occurrence: None)
  Receive Date: 20110124
  Receipt Date: 20110113
  Transmission Date: 20110831
  Serious: Yes (Hospitalization)
  Sender: FDA-Public Use
  Company Number: IT-ASTRAZENECA-2011SE02418

PATIENT

DRUGS (2)
  1. ATENOLOL [Suspect]
     Route: 065
  2. RAMIPRIL [Suspect]
     Route: 048

REACTIONS (1)
  - HYPOTENSION [None]
